FAERS Safety Report 6865596-9 (Version None)
Quarter: 2010Q3

REPORT INFORMATION
  Report Type: 
  Country: None (occurrence: None)
  Receive Date: 20100721
  Receipt Date: 20080425
  Transmission Date: 20110219
  Serious: No
  Sender: FDA-Public Use
  Company Number: US-PFIZER INC-2008037329

PATIENT
  Sex: Female
  Weight: 68.9 kg

DRUGS (9)
  1. CHANTIX [Suspect]
     Indication: SMOKING CESSATION THERAPY
     Dates: start: 20070101, end: 20080101
  2. ADVAIR DISKUS 100/50 [Concomitant]
  3. ALLEGRA D 24 HOUR [Concomitant]
  4. REQUIP [Concomitant]
  5. TIMOLOL MALEATE [Concomitant]
  6. PREVACID [Concomitant]
  7. CLONAZEPAM [Concomitant]
  8. AMITRIPTYLINE HYDROCHLORIDE [Concomitant]
  9. LIPITOR [Concomitant]

REACTIONS (1)
  - OEDEMA PERIPHERAL [None]
